FAERS Safety Report 20290491 (Version 1)
Quarter: 2022Q1

REPORT INFORMATION
  Report Type: Spontaneous
  Country: US (occurrence: None)
  Receive Date: 20220103
  Receipt Date: 20220103
  Transmission Date: 20220424
  Serious: No
  Sender: FDA-Public Use
  Company Number: None

PATIENT
  Sex: Male

DRUGS (2)
  1. OTEZLA [Suspect]
     Active Substance: APREMILAST
     Indication: Psoriasis
     Dosage: 30 MG TWICE DAILY ORAL?
     Route: 048
     Dates: start: 202112
  2. OTEZLA [Suspect]
     Active Substance: APREMILAST
     Indication: Dermatitis

REACTIONS (1)
  - Drug ineffective [None]
